FAERS Safety Report 7099433-7 (Version None)
Quarter: 2010Q4

REPORT INFORMATION
  Report Type: 
  Country: None (occurrence: None)
  Receive Date: 20101105
  Receipt Date: 20101021
  Transmission Date: 20110411
  Serious: Yes (Other)
  Sender: FDA-Public Use
  Company Number: 2010MA000442

PATIENT
  Sex: Female

DRUGS (4)
  1. SERTRALINE HYDROCHLORIDE [Suspect]
     Indication: DEPRESSION
     Dosage: 100 MG
  2. CIPRALEX (NO PREF. NAME) [Suspect]
     Indication: DEPRESSION
     Dosage: 20 MG
  3. CON MEDS [Concomitant]
  4. PREV MEDS [Concomitant]

REACTIONS (7)
  - DRUG EXPOSURE DURING PREGNANCY [None]
  - FORCEPS DELIVERY [None]
  - INDUCED LABOUR [None]
  - INTRA-UTERINE DEATH [None]
  - PLACENTAL DISORDER [None]
  - POLYHYDRAMNIOS [None]
  - POSTPARTUM HAEMORRHAGE [None]
